FAERS Safety Report 4706583-6 (Version None)
Quarter: 2005Q3

REPORT INFORMATION
  Report Type: 
  Country: None (occurrence: None)
  Receive Date: 20050705
  Receipt Date: 20050620
  Transmission Date: 20060218
  Serious: Yes (Life-Threatening, Hospitalization, Other)
  Sender: FDA-Public Use
  Company Number: 2005AC00921

PATIENT
  Age: 6967 Day
  Sex: Female

DRUGS (2)
  1. PULMICORT [Suspect]
     Route: 055
  2. SYMBICORT TURBUHALER [Suspect]
     Indication: ASTHMA
     Dosage: 400/12 MCG
     Route: 055
     Dates: start: 19860101

REACTIONS (1)
  - CUSHING'S SYNDROME [None]
